FAERS Safety Report 17834869 (Version 1)
Quarter: 2020Q2

REPORT INFORMATION
  Report Type: Spontaneous
  Country: US (occurrence: US)
  Receive Date: 20200528
  Receipt Date: 20200528
  Transmission Date: 20200714
  Serious: Yes (Other)
  Sender: FDA-Public Use
  Company Number: US-ASTRAZENECA-2020SE67286

PATIENT
  Age: 62 Year
  Sex: Female
  Weight: 69.9 kg

DRUGS (1)
  1. BYETTA [Suspect]
     Active Substance: EXENATIDE
     Indication: DIABETES MELLITUS
     Route: 058

REACTIONS (9)
  - Colon cancer recurrent [Unknown]
  - Dry skin [Unknown]
  - Weight increased [Unknown]
  - Food craving [Unknown]
  - Euphoric mood [Unknown]
  - Malaise [Unknown]
  - Device malfunction [Recovered/Resolved]
  - Neuropathy peripheral [Unknown]
  - Extra dose administered [Unknown]

NARRATIVE: CASE EVENT DATE: 2018
